FAERS Safety Report 17542452 (Version 1)
Quarter: 2020Q1

REPORT INFORMATION
  Report Type: Report from Study
  Country: US (occurrence: US)
  Receive Date: 20200314
  Receipt Date: 20200314
  Transmission Date: 20200409
  Serious: Yes (Other)
  Sender: FDA-Public Use
  Company Number: US-ACTELION-A-NJ2019-192805

PATIENT
  Age: 46 Year
  Sex: Male

DRUGS (23)
  1. VITAMIN B12 [Concomitant]
     Active Substance: CYANOCOBALAMIN
  2. IMODIUM A-D [Concomitant]
     Active Substance: LOPERAMIDE HYDROCHLORIDE
  3. VENTOLIN HFA [Concomitant]
     Active Substance: ALBUTEROL SULFATE
  4. SIMVASTATIN. [Concomitant]
     Active Substance: SIMVASTATIN
  5. PROTONIX [Concomitant]
     Active Substance: PANTOPRAZOLE SODIUM
  6. DEPAKOTE [Concomitant]
     Active Substance: DIVALPROEX SODIUM
  7. FOLIC ACID. [Concomitant]
     Active Substance: FOLIC ACID
  8. ACETAMINOPHEN. [Concomitant]
     Active Substance: ACETAMINOPHEN
  9. FERROUS SULFATE. [Concomitant]
     Active Substance: FERROUS SULFATE
  10. OPSUMIT [Suspect]
     Active Substance: MACITENTAN
     Indication: PULMONARY ARTERIAL HYPERTENSION
     Dosage: 10 MG, QD
     Route: 048
     Dates: start: 20190620
  11. SYNJARDY [Concomitant]
     Active Substance: EMPAGLIFLOZIN\METFORMIN HYDROCHLORIDE
  12. REVATIO [Concomitant]
     Active Substance: SILDENAFIL CITRATE
  13. ZANTAC [Concomitant]
     Active Substance: RANITIDINE HYDROCHLORIDE
  14. NEURONTIN [Concomitant]
     Active Substance: GABAPENTIN
  15. CARAFATE [Concomitant]
     Active Substance: SUCRALFATE
  16. HYDROCHLOROTHIAZIDE. [Concomitant]
     Active Substance: HYDROCHLOROTHIAZIDE
  17. LISINOPRIL. [Concomitant]
     Active Substance: LISINOPRIL
  18. GAVISCON [Concomitant]
     Active Substance: ALUMINUM HYDROXIDE\MAGNESIUM CARBONATE
  19. XALATAN [Concomitant]
     Active Substance: LATANOPROST
  20. FLONASE [Concomitant]
     Active Substance: FLUTICASONE PROPIONATE
  21. VITAMIN D3 [Concomitant]
     Active Substance: CHOLECALCIFEROL
  22. ATORVASTATIN CALCIUM. [Concomitant]
     Active Substance: ATORVASTATIN CALCIUM
  23. ATENOLOL. [Concomitant]
     Active Substance: ATENOLOL

REACTIONS (19)
  - Diarrhoea [Unknown]
  - Weight increased [Not Recovered/Not Resolved]
  - Fatigue [Not Recovered/Not Resolved]
  - Biopsy colon [Unknown]
  - Hepatic enzyme increased [Unknown]
  - Paralysis [Not Recovered/Not Resolved]
  - Jaw disorder [Unknown]
  - Headache [Not Recovered/Not Resolved]
  - Dizziness [Not Recovered/Not Resolved]
  - Muscular weakness [Not Recovered/Not Resolved]
  - Asthenia [Recovered/Resolved]
  - Pain [Recovered/Resolved]
  - Biopsy liver [Unknown]
  - Tremor [Not Recovered/Not Resolved]
  - Dysuria [Not Recovered/Not Resolved]
  - Insomnia [Unknown]
  - Liver function test increased [Not Recovered/Not Resolved]
  - Hot flush [Not Recovered/Not Resolved]
  - Arthropathy [Unknown]

NARRATIVE: CASE EVENT DATE: 20190628
